FAERS Safety Report 17520684 (Version 1)
Quarter: 2020Q1

REPORT INFORMATION
  Report Type: Spontaneous
  Country: QA (occurrence: QA)
  Receive Date: 20200309
  Receipt Date: 20200309
  Transmission Date: 20200409
  Serious: Yes (Other)
  Sender: FDA-Public Use
  Company Number: QA-NOVOPROD-716412

PATIENT
  Age: 31 Year
  Sex: Male

DRUGS (3)
  1. THYROXINE [Suspect]
     Active Substance: LEVOTHYROXINE
     Indication: SUPPLEMENTATION THERAPY
     Dosage: UNK
     Route: 065
  2. NORDITROPIN [Suspect]
     Active Substance: SOMATROPIN
     Indication: SUPPLEMENTATION THERAPY
     Dosage: UNK
     Route: 065
  3. CREATININE [Suspect]
     Active Substance: CREATININE
     Indication: SUPPLEMENTATION THERAPY
     Dosage: UNK
     Route: 065

REACTIONS (4)
  - Generalised tonic-clonic seizure [Unknown]
  - Intentional overdose [Unknown]
  - Hypopituitarism [Unknown]
  - Drug abuse [Unknown]
